FAERS Safety Report 7749042-9 (Version None)
Quarter: 2011Q3

REPORT INFORMATION
  Report Type: 
  Country: None (occurrence: None)
  Receive Date: 20110914
  Receipt Date: 20110906
  Transmission Date: 20111222
  Serious: Yes (Other)
  Sender: FDA-Public Use
  Company Number: JP-JNJFOC-20110810671

PATIENT

DRUGS (7)
  1. CISPLATIN [Suspect]
     Dosage: ON DAYS 1-5
     Route: 065
  2. DOXORUBICIN HYDROCHLORIDE [Suspect]
     Indication: OESOPHAGEAL CARCINOMA
     Dosage: ON DAY 1, EVERY 4 WEEKS
     Route: 042
  3. CISPLATIN [Suspect]
     Indication: OESOPHAGEAL CARCINOMA
     Dosage: ON DAYS 1-5
     Route: 065
  4. FLUOROURACIL [Suspect]
     Indication: OESOPHAGEAL CARCINOMA
     Route: 065
  5. FLUOROURACIL [Suspect]
     Route: 065
  6. RADIATION THERAPY NOS [Suspect]
     Indication: OESOPHAGEAL CARCINOMA
     Dosage: RADIATION OF 60-66 GY, 2GY/DAY
     Route: 065
  7. DOXORUBICIN HYDROCHLORIDE [Suspect]
     Dosage: ON DAY 1, EVERY 4 WEEKS
     Route: 065

REACTIONS (2)
  - RADIATION PNEUMONITIS [None]
  - OFF LABEL USE [None]
